FAERS Safety Report 9538267 (Version 1)
Quarter: 2013Q3

REPORT INFORMATION
  Report Type: Spontaneous
  Country: IN (occurrence: IN)
  Receive Date: 20130920
  Receipt Date: 20130920
  Transmission Date: 20140515
  Serious: Yes (Hospitalization, Other)
  Sender: FDA-Public Use
  Company Number: IN-MERCK-1309IND007088

PATIENT
  Age: 52 Year
  Sex: Male

DRUGS (2)
  1. JANUVIA [Suspect]
     Dosage: 1 TABLET (100MG), QD
     Route: 048
  2. MIXTARD [Concomitant]
     Dosage: UNKNOWN

REACTIONS (9)
  - Myocardial infarction [Unknown]
  - Cerebrovascular accident [Unknown]
  - Cerebrovascular accident [Unknown]
  - Brain injury [Not Recovered/Not Resolved]
  - Sensory loss [Not Recovered/Not Resolved]
  - Joint swelling [Unknown]
  - Multiple fractures [Unknown]
  - Fall [Unknown]
  - Fall [Unknown]
